FAERS Safety Report 20077861 (Version 1)
Quarter: 2021Q4

REPORT INFORMATION
  Report Type: Spontaneous
  Country: DE (occurrence: DE)
  Receive Date: 20211116
  Receipt Date: 20211116
  Transmission Date: 20220303
  Serious: Yes (Life-Threatening, Other)
  Sender: FDA-Public Use
  Company Number: DE-BAXTER-2021BAX026373

PATIENT
  Age: 83 Year
  Sex: Male

DRUGS (10)
  1. DEXAMETHASONE [Suspect]
     Active Substance: DEXAMETHASONE
     Indication: Product used for unknown indication
     Dosage: UNK
     Route: 065
  2. CEFUROXIME [Suspect]
     Active Substance: CEFUROXIME
     Indication: Product used for unknown indication
     Dosage: UNK
     Route: 065
  3. CISATRACURIUM [Suspect]
     Active Substance: CISATRACURIUM
     Indication: Anaesthesia procedure
     Dosage: UNK
     Route: 042
     Dates: start: 20210817, end: 20210817
  4. THROMBIN [Suspect]
     Active Substance: THROMBIN
     Indication: Surgery
     Dosage: UNK
     Route: 061
     Dates: start: 20210817, end: 20210817
  5. CLONIDINE [Suspect]
     Active Substance: CLONIDINE
     Indication: Product used for unknown indication
     Dosage: UNK
     Route: 065
  6. NIMBEX [Suspect]
     Active Substance: CISATRACURIUM BESYLATE
     Indication: Product used for unknown indication
     Dosage: UNK
     Route: 065
  7. FENTANYL [Suspect]
     Active Substance: FENTANYL
     Indication: Anaesthesia procedure
     Dosage: UNK
     Route: 042
     Dates: start: 20210817, end: 20210817
  8. PROPOFOL [Suspect]
     Active Substance: PROPOFOL
     Indication: Anaesthesia procedure
     Dosage: UNK
     Route: 042
     Dates: start: 20210817, end: 20210817
  9. FIBRINOGEN HUMAN\THROMBIN HUMAN [Suspect]
     Active Substance: FIBRINOGEN HUMAN\THROMBIN HUMAN
     Indication: Surgery
     Dosage: UNK
     Route: 061
     Dates: start: 20210805
  10. FIBRINOGEN HUMAN\THROMBIN HUMAN [Suspect]
     Active Substance: FIBRINOGEN HUMAN\THROMBIN HUMAN
     Dosage: UNK
     Route: 061
     Dates: start: 20210817, end: 20210817

REACTIONS (2)
  - Anaphylactic reaction [Recovered/Resolved]
  - Shock [Recovered/Resolved]

NARRATIVE: CASE EVENT DATE: 20210817
